FAERS Safety Report 15286464 (Version 2)
Quarter: 2018Q3

REPORT INFORMATION
  Report Type: Spontaneous
  Country: DE (occurrence: DE)
  Receive Date: 20180816
  Receipt Date: 20180823
  Transmission Date: 20181010
  Serious: Yes (Life-Threatening, Hospitalization)
  Sender: FDA-Public Use
  Company Number: PHHY2010DE101588

PATIENT
  Age: 80 Year
  Sex: Female
  Weight: 91 kg

DRUGS (17)
  1. CALCIMAGON [Concomitant]
     Active Substance: CALCIUM
     Indication: OSTEOPOROSIS PROPHYLAXIS
     Dosage: 2 DF(UG/L), QD (1 TABLETTE ENTH?LT 600 MG CALCIUM UND 10 ?G COLECALCIFEROL)
     Route: 048
     Dates: start: 200802
  2. ACETYLSALICYLIC ACID [Concomitant]
     Active Substance: ASPIRIN
     Indication: HEART VALVE INCOMPETENCE
     Dosage: 100 MG, QD
     Route: 048
  3. CARVEDILOL. [Interacting]
     Active Substance: CARVEDILOL
     Indication: HYPERTENSION
     Dosage: 26 MG, UNK
     Route: 048
  4. L?THYROXINE [Concomitant]
     Active Substance: LEVOTHYROXINE
     Indication: HYPOTHYROIDISM
     Dosage: 75 UG, QD
     Route: 048
  5. SALBUTAMOL [Concomitant]
     Active Substance: ALBUTEROL
     Indication: CHRONIC OBSTRUCTIVE PULMONARY DISEASE
     Dosage: 0.4 MG, QD
     Route: 055
     Dates: start: 200801
  6. TORASEMIDE [Concomitant]
     Active Substance: TORSEMIDE
     Indication: HYPERTENSION
     Dosage: 5 MG, QD
     Route: 048
  7. LANTUS [Interacting]
     Active Substance: INSULIN GLARGINE
     Indication: TYPE 2 DIABETES MELLITUS
     Dosage: 36 IU, QD
     Route: 058
     Dates: start: 20080219
  8. LANTUS [Interacting]
     Active Substance: INSULIN GLARGINE
     Dosage: 26 IU, QD
     Route: 065
  9. PARACODIN [Concomitant]
     Active Substance: DIHYDROCODEINE BITARTRATE
     Indication: CHRONIC OBSTRUCTIVE PULMONARY DISEASE
     Dosage: 30 GTT, UNK
     Route: 048
  10. ENALAPRIL [Suspect]
     Active Substance: ENALAPRIL
     Indication: HYPERTENSION
     Dosage: 10 MG, BID (20 MG, QD)
     Route: 048
  11. LANTUS [Interacting]
     Active Substance: INSULIN GLARGINE
     Dosage: 36 IU, QD
     Route: 058
     Dates: start: 20100316
  12. ACTRAPID [Interacting]
     Active Substance: INSULIN HUMAN
     Indication: TYPE 2 DIABETES MELLITUS
     Dosage: UNK (30?18?16 IU)
     Route: 065
  13. OMEPRAZOLE. [Concomitant]
     Active Substance: OMEPRAZOLE
     Indication: PROPHYLAXIS AGAINST GASTROINTESTINAL ULCER
     Dosage: 20 MG, UNK
     Route: 048
  14. CALCIMAGON [Concomitant]
     Active Substance: CALCIUM
     Dosage: 4 UG, QD(600 MG/10)
     Route: 048
     Dates: start: 200802
  15. RISPERIDONE. [Concomitant]
     Active Substance: RISPERIDONE
     Indication: DEMENTIA
     Dosage: 1 MG, QD
     Route: 048
  16. RISPERIDONE. [Concomitant]
     Active Substance: RISPERIDONE
     Dosage: 0.5 MG, QD
     Route: 048
  17. PREDNISOLONE. [Concomitant]
     Active Substance: PREDNISOLONE
     Indication: CHRONIC OBSTRUCTIVE PULMONARY DISEASE
     Dosage: 20 MG, QD
     Route: 048
     Dates: start: 200801

REACTIONS (3)
  - Hypoglycaemia [Recovered/Resolved]
  - Drug interaction [Unknown]
  - Haemoglobin decreased [Unknown]

NARRATIVE: CASE EVENT DATE: 20080317
